FAERS Safety Report 9026413 (Version 1)
Quarter: 2012Q4

REPORT INFORMATION
  Report Type: Spontaneous
  Country: US (occurrence: None)
  Receive Date: 20121211
  Receipt Date: 20121211
  Transmission Date: 20130627
  Serious: Yes (Death, Other)
  Sender: FDA-Public Use
  Company Number: 2012SP004303

PATIENT
  Age: 32 Year
  Sex: Male

DRUGS (9)
  1. HALOPERIDOL DECANOATE [Suspect]
     Indication: PSYCHOTIC DISORDER
  2. FLUOXETINE [Suspect]
     Indication: ANTIDEPRESSANT THERAPY
  3. QUETIAPINE FUMARATE [Suspect]
     Indication: PSYCHOTIC DISORDER
  4. PAROXETINE (PAROXETINE) [Suspect]
     Indication: ANTIDEPRESSANT THERAPY
  5. LORAZEPAM [Suspect]
     Indication: ANXIOLYTIC THERAPY
  6. BROMAZEPAM [Suspect]
     Indication: ANXIOLYTIC THERAPY
  7. OLANZAPINE [Suspect]
     Indication: PSYCHOTIC DISORDER
  8. RISPERIDONE [Concomitant]
  9. DIAZEPAM [Concomitant]

REACTIONS (5)
  - Visceral congestion [None]
  - Acute pulmonary oedema [None]
  - Toxicity to various agents [None]
  - Completed suicide [None]
  - Intentional overdose [None]
